FAERS Safety Report 5237141-5 (Version None)
Quarter: 2007Q1

REPORT INFORMATION
  Report Type: 
  Country: None (occurrence: None)
  Receive Date: 20070213
  Receipt Date: 20070212
  Transmission Date: 20070707
  Serious: Yes (Hospitalization)
  Sender: FDA-Public Use
  Company Number: US-GLAXOSMITHKLINE-A0639206A

PATIENT
  Age: 71 Year
  Sex: Male

DRUGS (10)
  1. COREG [Suspect]
     Dosage: 18.75MG TWICE PER DAY
     Route: 048
  2. ZESTRIL [Concomitant]
  3. PLAVIX [Concomitant]
  4. ASCORBIC ACID [Concomitant]
  5. ASPIRIN [Concomitant]
  6. NEORAL [Concomitant]
  7. LASIX [Concomitant]
  8. K-DUR 10 [Concomitant]
  9. ROCALTROL [Concomitant]
  10. DRISDOL [Concomitant]

REACTIONS (3)
  - ALOPECIA [None]
  - DIZZINESS [None]
  - STEM CELL TRANSPLANT [None]
